FAERS Safety Report 10784015 (Version 1)
Quarter: 2015Q1

REPORT INFORMATION
  Report Type: Report from Study
  Country: US (occurrence: US)
  Receive Date: 20150211
  Receipt Date: 20150211
  Transmission Date: 20150721
  Serious: Yes (Death, Other)
  Sender: FDA-Public Use
  Company Number: US-ROCHE-1529890

PATIENT
  Sex: Female

DRUGS (1)
  1. ALTEPLASE [Suspect]
     Active Substance: ALTEPLASE
     Indication: THROMBOLYSIS
     Dosage: FREQUENCY: EVERY 8 HOURS FOR UP TO 12 DOSES
     Route: 050

REACTIONS (2)
  - CNS ventriculitis [Recovered/Resolved]
  - Brain herniation [Fatal]

NARRATIVE: CASE EVENT DATE: 20100606
